FAERS Safety Report 7800909-2 (Version None)
Quarter: 2011Q4

REPORT INFORMATION
  Report Type: 
  Country: None (occurrence: None)
  Receive Date: 20111006
  Receipt Date: 20110928
  Transmission Date: 20120403
  Serious: Yes (Other)
  Sender: FDA-Public Use
  Company Number: US-US-EMD SERONO, INC.-7086362

PATIENT
  Sex: Female

DRUGS (3)
  1. REBIF [Suspect]
     Indication: PRODUCT USED FOR UNKNOWN INDICATION
     Route: 058
     Dates: start: 20110524
  2. SYSTANE [Concomitant]
     Indication: DRY EYE
     Dates: start: 20100101
  3. REBIF [Suspect]
     Route: 058

REACTIONS (7)
  - EYE DISORDER [None]
  - DRY EYE [None]
  - INJECTION SITE HAEMATOMA [None]
  - OCULAR HYPERAEMIA [None]
  - EYELID PAIN [None]
  - OPTIC NEURITIS [None]
  - INJECTION SITE ERYTHEMA [None]
